FAERS Safety Report 10073077 (Version 2)
Quarter: 2014Q2

REPORT INFORMATION
  Report Type: Spontaneous
  Country: US (occurrence: US)
  Receive Date: 20140411
  Receipt Date: 20140411
  Transmission Date: 20141212
  Serious: Yes (Other)
  Sender: FDA-Public Use
  Company Number: PHEH2011US05308

PATIENT
  Sex: Female

DRUGS (9)
  1. GLEEVEC [Suspect]
     Dosage: 400 MG, QD
     Dates: start: 2011
  2. METFORMIN [Concomitant]
     Dosage: UNK UKN, UNK
  3. GLIPIZIDE [Concomitant]
     Dosage: UNK UKN, UNK
  4. COZAAR [Concomitant]
     Dosage: UNK UKN, UNK
  5. VALSARTAN [Concomitant]
     Dosage: UNK UKN, UNK
  6. ATORVASTATIN [Concomitant]
     Dosage: UNK UKN, UNK
  7. AMLODIPINE [Concomitant]
     Dosage: UNK UKN, UNK
  8. INSULIN [Concomitant]
     Dosage: UNK UKN, UNK
  9. GLYBURIDE [Concomitant]
     Dosage: UNK UKN, UNK

REACTIONS (7)
  - Diabetes mellitus [Unknown]
  - Nausea [Unknown]
  - Diarrhoea [Unknown]
  - Headache [Unknown]
  - Rash [Unknown]
  - Fatigue [Unknown]
  - Malaise [Unknown]
